FAERS Safety Report 9575419 (Version 1)
Quarter: 2013Q4

REPORT INFORMATION
  Report Type: Spontaneous
  Country: US (occurrence: US)
  Receive Date: 20131001
  Receipt Date: 20131001
  Transmission Date: 20140711
  Serious: No
  Sender: FDA-Public Use
  Company Number: US-AMGEN-USASP2013002151

PATIENT
  Sex: Female
  Weight: 78.91 kg

DRUGS (7)
  1. ENBREL [Suspect]
     Indication: RHEUMATOID ARTHRITIS
     Dosage: 50 MG, QWK
     Route: 058
  2. CALAN                              /00014302/ [Concomitant]
     Dosage: 180 MG, SR TAB
  3. BENADRYL                           /00000402/ [Concomitant]
     Dosage: 25 MG, UNK
  4. ARAVA [Concomitant]
     Dosage: 10 MG, UNK
  5. TRAMADOL HYDROCHLORIDE [Concomitant]
     Dosage: 50 MG, UNK
  6. LEXAPRO [Concomitant]
     Dosage: 5 MG, UNK
  7. LOSARTAN                           /01121602/ [Concomitant]
     Dosage: 50 MG, UNK

REACTIONS (1)
  - Urinary tract infection [Unknown]
